FAERS Safety Report 14996129 (Version 1)
Quarter: 2018Q2

REPORT INFORMATION
  Report Type: Spontaneous
  Country: US (occurrence: US)
  Receive Date: 20180522
  Receipt Date: 20180522
  Transmission Date: 20180711
  Serious: No
  Sender: FDA-Public Use
  Company Number: None

PATIENT
  Age: 44 Year
  Sex: Female
  Weight: 71.1 kg

DRUGS (8)
  1. LAMICTAL [Concomitant]
     Active Substance: LAMOTRIGINE
  2. PRISTIQ EXTENDED-RELEASE [Concomitant]
     Active Substance: DESVENLAFAXINE SUCCINATE
  3. COREG [Concomitant]
     Active Substance: CARVEDILOL
  4. FLAXSEED [Concomitant]
     Active Substance: FLAX SEED
  5. GABAPENTIN. [Concomitant]
     Active Substance: GABAPENTIN
  6. GLUCOSAMINE/CHONDROITIN [Concomitant]
  7. CLONAZEPAM. [Suspect]
     Active Substance: CLONAZEPAM
     Indication: PREMENSTRUAL DYSPHORIC DISORDER
     Dosage: ?          QUANTITY:1 TABLET(S);?
     Route: 048
     Dates: start: 20180518
  8. FISH OIL [Concomitant]
     Active Substance: FISH OIL

REACTIONS (4)
  - Product taste abnormal [None]
  - Product substitution issue [None]
  - Drug effect decreased [None]
  - Drug effect delayed [None]

NARRATIVE: CASE EVENT DATE: 20180518
